FAERS Safety Report 19479376 (Version 4)
Quarter: 2023Q2

REPORT INFORMATION
  Report Type: Spontaneous
  Country: CA (occurrence: CA)
  Receive Date: 20210701
  Receipt Date: 20230413
  Transmission Date: 20230721
  Serious: Yes (Other)
  Sender: FDA-Public Use
  Company Number: CA-SAMSUNG BIOEPIS-SB-2021-15519

PATIENT
  Age: 36 Year
  Sex: Male
  Weight: 67 kg

DRUGS (4)
  1. INFLIXIMAB [Suspect]
     Active Substance: INFLIXIMAB
     Indication: Crohn^s disease
     Route: 042
  2. INFLIXIMAB [Suspect]
     Active Substance: INFLIXIMAB
     Route: 042
  3. EMLA (LIDOCAINE,PRILOCAINE) [Concomitant]
     Indication: Premedication
     Dosage: UNKNOWN
     Route: 065
  4. EMLA (LIDOCAINE,PRILOCAINE) [Concomitant]
     Dosage: UNKNOWN
     Route: 065

REACTIONS (23)
  - Abdominal discomfort [Not Recovered/Not Resolved]
  - Anxiety [Not Recovered/Not Resolved]
  - Arthralgia [Not Recovered/Not Resolved]
  - Chest discomfort [Not Recovered/Not Resolved]
  - Condition aggravated [Not Recovered/Not Resolved]
  - Cough [Not Recovered/Not Resolved]
  - Diarrhoea [Not Recovered/Not Resolved]
  - Dizziness [Recovered/Resolved]
  - Ear pain [Not Recovered/Not Resolved]
  - Fear of injection [Not Recovered/Not Resolved]
  - Gingivitis [Not Recovered/Not Resolved]
  - Hyperhidrosis [Recovered/Resolved]
  - Illness [Not Recovered/Not Resolved]
  - Loss of consciousness [Not Recovered/Not Resolved]
  - Malaise [Not Recovered/Not Resolved]
  - Pallor [Recovered/Resolved]
  - Productive cough [Not Recovered/Not Resolved]
  - Tachycardia [Not Recovered/Not Resolved]
  - Tooth infection [Not Recovered/Not Resolved]
  - Drug ineffective [Not Recovered/Not Resolved]
  - Inappropriate schedule of product administration [Not Recovered/Not Resolved]
  - Intentional product use issue [Not Recovered/Not Resolved]
  - Off label use [Not Recovered/Not Resolved]
